FAERS Safety Report 25722388 (Version 1)
Quarter: 2025Q3

REPORT INFORMATION
  Report Type: Spontaneous
  Country: GB (occurrence: GB)
  Receive Date: 20250825
  Receipt Date: 20250825
  Transmission Date: 20251021
  Serious: Yes (Hospitalization)
  Sender: VERTEX
  Company Number: GB-VERTEX PHARMACEUTICALS-2025-013882

PATIENT
  Sex: Female

DRUGS (1)
  1. IVACAFTOR\TEZACAFTOR [Suspect]
     Active Substance: IVACAFTOR\TEZACAFTOR
     Indication: Cystic fibrosis
     Dosage: 01 TABLET (100MG TEZACAFTOR/150MG IVACAFTOR), QD (OM- IN THE MORNING)
     Route: 048

REACTIONS (1)
  - Hospitalisation [Not Recovered/Not Resolved]
